FAERS Safety Report 5214770-6 (Version None)
Quarter: 2007Q1

REPORT INFORMATION
  Report Type: 
  Country: None (occurrence: None)
  Receive Date: 20070117
  Receipt Date: 20061212
  Transmission Date: 20070707
  Serious: Yes (Life-Threatening, Hospitalization)
  Sender: FDA-Public Use
  Company Number: WAES 0605CAN00166

PATIENT
  Sex: Female

DRUGS (10)
  1. ZETIA [Suspect]
     Indication: DRUG USE FOR UNKNOWN INDICATION
     Dosage: PO
     Route: 048
     Dates: start: 20041001
  2. CLOZAPINE [Suspect]
     Indication: SCHIZOPHRENIA
     Dosage: 500 MG
     Dates: start: 20040405, end: 20041230
  3. ASPIRIN [Concomitant]
  4. FLURAZEPAM HCL [Concomitant]
  5. LOXAPINE HCL [Concomitant]
  6. METFORMIN HCL [Concomitant]
  7. PAROXETINE HCL [Concomitant]
  8. RAMIPRIL [Concomitant]
  9. ROSIGLITAZONE MALEATE [Concomitant]
  10. TOPIRAMATE [Concomitant]

REACTIONS (4)
  - COMA [None]
  - ENCEPHALOPATHY [None]
  - GENERAL PHYSICAL HEALTH DETERIORATION [None]
  - HEPATITIS [None]
